FAERS Safety Report 5374164-X (Version None)
Quarter: 2007Q2

REPORT INFORMATION
  Report Type: 
  Country: None (occurrence: None)
  Receive Date: 20070627
  Receipt Date: 20061207
  Transmission Date: 20071010
  Serious: Yes (Death)
  Sender: FDA-Public Use
  Company Number: 474759

PATIENT
  Age: 71 Year
  Sex: Male

DRUGS (1)
  1. XELODA [Suspect]
     Indication: DRUG USE FOR UNKNOWN INDICATION
     Dates: start: 20061114

REACTIONS (1)
  - NEOPLASM MALIGNANT [None]
